FAERS Safety Report 17589935 (Version 1)
Quarter: 2020Q1

REPORT INFORMATION
  Report Type: Spontaneous
  Country: US (occurrence: US)
  Receive Date: 20200327
  Receipt Date: 20200327
  Transmission Date: 20200409
  Serious: No
  Sender: FDA-Public Use
  Company Number: US-ALLERGAN-2008392US

PATIENT
  Sex: Male

DRUGS (2)
  1. LUMIGAN [Suspect]
     Active Substance: BIMATOPROST
     Indication: PRODUCT USED FOR UNKNOWN INDICATION
     Dosage: UNK
     Route: 047
  2. TIMOLOL. [Concomitant]
     Active Substance: TIMOLOL
     Dosage: UNK

REACTIONS (3)
  - Product dropper issue [Unknown]
  - Incorrect dose administered [Unknown]
  - Product storage error [Unknown]
